FAERS Safety Report 22280643 (Version 1)
Quarter: 2023Q2

REPORT INFORMATION
  Report Type: Spontaneous
  Country: US (occurrence: None)
  Receive Date: 20230502
  Receipt Date: 20230502
  Transmission Date: 20230722
  Serious: No
  Sender: FDA-Public Use
  Company Number: None

PATIENT
  Age: 44 Year
  Sex: Female
  Weight: 56.7 kg

DRUGS (1)
  1. CIMZIA [Suspect]
     Active Substance: CERTOLIZUMAB PEGOL
     Dates: start: 20230331, end: 20230421

REACTIONS (7)
  - Fatigue [None]
  - Rhinorrhoea [None]
  - Pruritus [None]
  - Butterfly rash [None]
  - Pain [None]
  - Pyrexia [None]
  - Epistaxis [None]

NARRATIVE: CASE EVENT DATE: 20230331
